FAERS Safety Report 23234294 (Version 1)
Quarter: 2023Q4

REPORT INFORMATION
  Report Type: Report from Study
  Country: US (occurrence: US)
  Receive Date: 20231128
  Receipt Date: 20231128
  Transmission Date: 20240110
  Serious: Yes (Other)
  Sender: FDA-Public Use
  Company Number: US-BAYER-2023A134955

PATIENT
  Age: 74 Year
  Sex: Female
  Weight: 68.027 kg

DRUGS (18)
  1. ADEMPAS [Suspect]
     Active Substance: RIOCIGUAT
     Indication: Pulmonary arterial hypertension
     Dosage: 0.5 MG, TID
     Route: 048
     Dates: start: 20230306
  2. WARFARIN [Concomitant]
     Active Substance: WARFARIN
  3. OPSUMIT [Concomitant]
     Active Substance: MACITENTAN
  4. CRESTOR [Concomitant]
     Active Substance: ROSUVASTATIN CALCIUM
  5. BACLOFEN [Concomitant]
     Active Substance: BACLOFEN
  6. WARFARIN SODIUM [Concomitant]
     Active Substance: WARFARIN SODIUM
  7. PREGABALIN [Concomitant]
     Active Substance: PREGABALIN
  8. VITAMIN D2 [Concomitant]
     Active Substance: ERGOCALCIFEROL
  9. JENTADUETO [Concomitant]
     Active Substance: LINAGLIPTIN\METFORMIN HYDROCHLORIDE
  10. METOPROLOL SUCCINATE [Concomitant]
     Active Substance: METOPROLOL SUCCINATE
  11. LANTUS [Concomitant]
     Active Substance: INSULIN GLARGINE
  12. SPIRONOLACTONE [Concomitant]
     Active Substance: SPIRONOLACTONE
  13. OXYGEN [Concomitant]
     Active Substance: OXYGEN
  14. CALCIUM [Concomitant]
     Active Substance: CALCIUM
  15. LINZESS [Concomitant]
     Active Substance: LINACLOTIDE
  16. OMEPRAZOLE [Concomitant]
     Active Substance: OMEPRAZOLE
  17. TORSEMIDE [Concomitant]
     Active Substance: TORSEMIDE
  18. POTASSIUM CHLORIDE [Concomitant]
     Active Substance: POTASSIUM CHLORIDE

REACTIONS (2)
  - Medical procedure [None]
  - Oedema [Recovered/Resolved]

NARRATIVE: CASE EVENT DATE: 20230101
